FAERS Safety Report 9057188 (Version 1)
Quarter: 2013Q1

REPORT INFORMATION
  Report Type: Report from Study
  Country: CA (occurrence: CA)
  Receive Date: 20130131
  Receipt Date: 20130131
  Transmission Date: 20140127
  Serious: Yes (Other)
  Sender: FDA-Public Use
  Company Number: CA-ROCHE-1185259

PATIENT
  Sex: Female
  Weight: 45 kg

DRUGS (7)
  1. RITUXAN [Suspect]
     Indication: PEMPHIGUS
     Route: 042
     Dates: start: 20111115
  2. RITUXAN [Suspect]
     Route: 042
     Dates: start: 20111129
  3. PREDNISONE [Concomitant]
  4. FOSAVANCE [Concomitant]
  5. DIPHENHYDRAMINE HCL [Concomitant]
     Indication: PREMEDICATION
     Route: 048
     Dates: start: 20111115
  6. ACETAMINOPHEN [Concomitant]
     Indication: PREMEDICATION
     Route: 048
     Dates: start: 20111115
  7. METHYLPREDNISOLONE [Concomitant]
     Indication: PREMEDICATION
     Route: 042
     Dates: start: 20111115

REACTIONS (2)
  - Blood cholesterol increased [Recovering/Resolving]
  - Blood pressure increased [Recovering/Resolving]
